FAERS Safety Report 8186775-7 (Version None)
Quarter: 2012Q1

REPORT INFORMATION
  Report Type: 
  Country: None (occurrence: None)
  Receive Date: 20120306
  Receipt Date: 20120306
  Transmission Date: 20120608
  Serious: Yes (Hospitalization)
  Sender: FDA-Public Use
  Company Number: None

PATIENT
  Age: 64 Year
  Sex: Female
  Weight: 110.7 kg

DRUGS (2)
  1. OXALIPLATIN [Concomitant]
     Dosage: 85 MG/M2
     Route: 041
     Dates: start: 20120222, end: 20120222
  2. GEMCITABINE [Suspect]
     Indication: BILE DUCT CANCER
     Dosage: 1000 MG/M2
     Route: 041
     Dates: start: 20120222, end: 20120222

REACTIONS (5)
  - CITROBACTER TEST POSITIVE [None]
  - CHILLS [None]
  - VOMITING [None]
  - GASTROOESOPHAGEAL REFLUX DISEASE [None]
  - PYREXIA [None]
